FAERS Safety Report 24357686 (Version 1)
Quarter: 2024Q3

REPORT INFORMATION
  Report Type: Spontaneous
  Country: IT (occurrence: IT)
  Receive Date: 20240924
  Receipt Date: 20240924
  Transmission Date: 20241016
  Serious: Yes (Other)
  Sender: PFIZER
  Company Number: IT-PFIZER INC-202400258744

PATIENT
  Age: 70 Year
  Sex: Female

DRUGS (1)
  1. MEDROL [Suspect]
     Active Substance: METHYLPREDNISOLONE
     Dosage: 2 MG

REACTIONS (5)
  - Blood pressure decreased [Unknown]
  - Pleural effusion [Unknown]
  - Oxygen saturation decreased [Unknown]
  - Pulmonary pain [Unknown]
  - C-reactive protein increased [Unknown]
